FAERS Safety Report 16266724 (Version 1)
Quarter: 2019Q2

REPORT INFORMATION
  Report Type: Spontaneous
  Country: US (occurrence: US)
  Receive Date: 20190502
  Receipt Date: 20190502
  Transmission Date: 20190711
  Serious: Yes (Other)
  Sender: FDA-Public Use
  Company Number: PHHY2019US096311

PATIENT
  Sex: Female

DRUGS (1)
  1. LABETALOL [Suspect]
     Active Substance: LABETALOL\LABETALOL HYDROCHLORIDE
     Indication: HYPERTENSION
     Route: 041

REACTIONS (6)
  - Cardiac murmur [Unknown]
  - Pre-eclampsia [Unknown]
  - Metastases to kidney [Unknown]
  - Hypertrophic cardiomyopathy [Unknown]
  - Phaeochromocytoma [Unknown]
  - Maternal exposure during pregnancy [Unknown]
